FAERS Safety Report 21023231 (Version 1)
Quarter: 2022Q2

REPORT INFORMATION
  Report Type: Spontaneous
  Country: JP (occurrence: None)
  Receive Date: 20220629
  Receipt Date: 20220629
  Transmission Date: 20220721
  Serious: Yes (Hospitalization, Other)
  Sender: FDA-Public Use
  Company Number: JP-ROCHE-3123957

PATIENT
  Sex: Female

DRUGS (24)
  1. CARVEDILOL [Suspect]
     Active Substance: CARVEDILOL
     Indication: Coronary angioplasty
     Route: 048
  2. MIROGABALIN BESYLATE [Suspect]
     Active Substance: MIROGABALIN BESYLATE
     Indication: Neuropathy peripheral
     Route: 065
     Dates: start: 20220203, end: 20220207
  3. ATEZOLIZUMAB [Suspect]
     Active Substance: ATEZOLIZUMAB
     Indication: Product used for unknown indication
     Route: 041
  4. BEVACIZUMAB [Suspect]
     Active Substance: BEVACIZUMAB
     Indication: Product used for unknown indication
     Route: 065
  5. GRANISETRON [Concomitant]
     Active Substance: GRANISETRON
  6. AMINO ACIDS\DEXTROSE\ELECTROLYTES NOS\VITAMINS [Concomitant]
     Active Substance: AMINO ACIDS\DEXTROSE\ELECTROLYTES NOS\VITAMINS
  7. DEXAMETHASONE SODIUM PHOSPHATE [Concomitant]
     Active Substance: DEXAMETHASONE SODIUM PHOSPHATE
  8. GASTER [Concomitant]
     Active Substance: FAMOTIDINE
  9. SULPIRIDE [Concomitant]
     Active Substance: SULPIRIDE
  10. AMITRIPTYLINE [Concomitant]
     Active Substance: AMITRIPTYLINE
  11. DAYVIGO [Concomitant]
     Active Substance: LEMBOREXANT
  12. APREPITANT [Concomitant]
     Active Substance: APREPITANT
  13. DIPHENHYDRAMINE [Concomitant]
     Active Substance: DIPHENHYDRAMINE
  14. PEGFILGRASTIM [Concomitant]
     Active Substance: PEGFILGRASTIM
  15. GLYCYRON [Concomitant]
  16. URSO [Concomitant]
     Active Substance: URSODIOL
  17. ANAMORELIN HYDROCHLORIDE [Concomitant]
     Active Substance: ANAMORELIN HYDROCHLORIDE
  18. ENALAPRIL MALEATE [Concomitant]
     Active Substance: ENALAPRIL MALEATE
  19. CLOPIDOGREL [Concomitant]
     Active Substance: CLOPIDOGREL BISULFATE
  20. ATORVASTATIN [Concomitant]
     Active Substance: ATORVASTATIN
  21. SERTRALINE HYDROCHLORIDE [Concomitant]
     Active Substance: SERTRALINE HYDROCHLORIDE
  22. SULFAMETHOXAZOLE\TRIMETHOPRIM [Concomitant]
     Active Substance: SULFAMETHOXAZOLE\TRIMETHOPRIM
  23. DECADRON [Concomitant]
     Active Substance: DEXAMETHASONE
  24. ZYPREXA ZYDIS [Concomitant]
     Active Substance: OLANZAPINE

REACTIONS (12)
  - COVID-19 [Recovered/Resolved]
  - Decreased appetite [Not Recovered/Not Resolved]
  - Peripheral sensory neuropathy [Not Recovered/Not Resolved]
  - Hypokalaemia [Recovered/Resolved]
  - Dizziness [Recovered/Resolved]
  - Eczema [Not Recovered/Not Resolved]
  - Stomatitis [Recovered/Resolved]
  - Constipation [Not Recovered/Not Resolved]
  - Anaemia [Not Recovered/Not Resolved]
  - Oedema peripheral [Recovered/Resolved]
  - Nausea [Unknown]
  - Vomiting [Unknown]

NARRATIVE: CASE EVENT DATE: 20220203
